FAERS Safety Report 8848869 (Version 1)
Quarter: 2012Q4

REPORT INFORMATION
  Report Type: Spontaneous
  Country: US (occurrence: None)
  Receive Date: 20121017
  Receipt Date: 20121017
  Transmission Date: 20130627
  Serious: No
  Sender: FDA-Public Use
  Company Number: None

PATIENT
  Age: 59 Year
  Sex: Male

DRUGS (1)
  1. CIMZIA [Suspect]
     Dosage: 400mg Subcutaneously every 4 weeks
     Route: 058

REACTIONS (4)
  - Dizziness [None]
  - Loss of consciousness [None]
  - Nausea [None]
  - Vomiting [None]
